FAERS Safety Report 10784187 (Version 3)
Quarter: 2015Q2

REPORT INFORMATION
  Report Type: Spontaneous
  Country: US (occurrence: US)
  Receive Date: 20150211
  Receipt Date: 20150513
  Transmission Date: 20150821
  Serious: No
  Sender: FDA-Public Use
  Company Number: US-AMGEN-USASL2015011139

PATIENT
  Age: 54 Year
  Sex: Female

DRUGS (1)
  1. ENBREL [Suspect]
     Active Substance: ETANERCEPT
     Indication: RHEUMATOID ARTHRITIS
     Dosage: 50 MG, EVERY 7 DAYS
     Route: 058
     Dates: start: 20150127

REACTIONS (7)
  - Upper respiratory tract infection [Recovered/Resolved]
  - Hearing impaired [Not Recovered/Not Resolved]
  - Cough [Not Recovered/Not Resolved]
  - Otorrhoea [Recovered/Resolved]
  - Malaise [Not Recovered/Not Resolved]
  - Dry throat [Not Recovered/Not Resolved]
  - Dyspnoea [Recovered/Resolved]

NARRATIVE: CASE EVENT DATE: 2015
